FAERS Safety Report 13918690 (Version 1)
Quarter: 2017Q3

REPORT INFORMATION
  Report Type: Spontaneous
  Country: US (occurrence: None)
  Receive Date: 20170828
  Receipt Date: 20170828
  Transmission Date: 20171127
  Serious: Yes (Hospitalization)
  Sender: FDA-Public Use
  Company Number: None

PATIENT
  Age: 56 Year
  Sex: Male

DRUGS (18)
  1. TESTOST CYP [Concomitant]
     Active Substance: TESTOSTERONE CYPIONATE
  2. MESALAMINE. [Concomitant]
     Active Substance: MESALAMINE
  3. AMLODIPINE [Concomitant]
     Active Substance: AMLODIPINE BESYLATE
  4. CLONAZEPAM. [Concomitant]
     Active Substance: CLONAZEPAM
  5. DICYCLOMINE [Concomitant]
     Active Substance: DICYCLOMINE HYDROCHLORIDE
  6. LAMOTRIGINE. [Concomitant]
     Active Substance: LAMOTRIGINE
  7. BUT/APAP/CAF [Concomitant]
  8. OMEPRAZOLE. [Concomitant]
     Active Substance: OMEPRAZOLE
  9. PROAIR HFA [Concomitant]
     Active Substance: ALBUTEROL SULFATE
  10. CANASA [Concomitant]
     Active Substance: MESALAMINE
  11. DESVENLAFAX [Concomitant]
  12. LISINOPRIL. [Concomitant]
     Active Substance: LISINOPRIL
  13. PREDNISONE. [Concomitant]
     Active Substance: PREDNISONE
  14. SIMPONI [Suspect]
     Active Substance: GOLIMUMAB
     Indication: COLITIS ULCERATIVE
     Route: 058
     Dates: start: 20170508
  15. METOPROLOL TARTRATE. [Concomitant]
     Active Substance: METOPROLOL TARTRATE
  16. HYOSCYAMINE. [Concomitant]
     Active Substance: HYOSCYAMINE
  17. DULOXETINE. [Concomitant]
     Active Substance: DULOXETINE
  18. PROCTOZONE CREAM [Concomitant]

REACTIONS (6)
  - Muscle spasms [None]
  - Pain [None]
  - Diarrhoea [None]
  - Condition aggravated [None]
  - Dehydration [None]
  - Sleep disorder [None]

NARRATIVE: CASE EVENT DATE: 201708
